FAERS Safety Report 9330813 (Version 1)
Quarter: 2013Q2

REPORT INFORMATION
  Report Type: Spontaneous
  Country: US (occurrence: None)
  Receive Date: 20130604
  Receipt Date: 20130604
  Transmission Date: 20140414
  Serious: Yes (Hospitalization)
  Sender: FDA-Public Use
  Company Number: None

PATIENT
  Age: 84 Year
  Sex: Female

DRUGS (9)
  1. RIVASTIGMIN [Suspect]
     Indication: DEMENTIA
     Route: 061
  2. LATANOPROST [Concomitant]
  3. HYSAAR [Concomitant]
  4. MEMANTINE [Concomitant]
  5. ASA [Concomitant]
  6. AMLODIPINE [Concomitant]
  7. DCOCUSATE [Concomitant]
  8. MECLIZINE [Concomitant]
  9. ROSUVASTATIN [Concomitant]

REACTIONS (1)
  - Syncope [None]
